FAERS Safety Report 14837831 (Version 3)
Quarter: 2018Q4

REPORT INFORMATION
  Report Type: Spontaneous
  Country: US (occurrence: US)
  Receive Date: 20180502
  Receipt Date: 20181120
  Transmission Date: 20190204
  Serious: Yes (Hospitalization, Other)
  Sender: FDA-Public Use
  Company Number: US-BAYER-2018-078805

PATIENT
  Age: 41 Year
  Sex: Female

DRUGS (1)
  1. MIRENA [Suspect]
     Active Substance: LEVONORGESTREL
     Indication: CONTRACEPTION
     Dosage: 20 MCG/24HR, CONT
     Route: 015
     Dates: start: 201501

REACTIONS (24)
  - Hypersensitivity [None]
  - Malaise [None]
  - Vomiting [None]
  - Migraine [Not Recovered/Not Resolved]
  - Breast tenderness [Not Recovered/Not Resolved]
  - Abdominal pain lower [Not Recovered/Not Resolved]
  - Cardiac discomfort [None]
  - Blood pressure increased [Not Recovered/Not Resolved]
  - Genital haemorrhage [Recovered/Resolved]
  - Nausea [Recovered/Resolved with Sequelae]
  - Dyspnoea [None]
  - Back pain [Not Recovered/Not Resolved]
  - Anxiety [None]
  - Presyncope [None]
  - Skin burning sensation [None]
  - Vision blurred [Not Recovered/Not Resolved]
  - Abdominal pain upper [Not Recovered/Not Resolved]
  - Joint swelling [None]
  - Dizziness [Not Recovered/Not Resolved]
  - Pain in extremity [Not Recovered/Not Resolved]
  - Neck pain [Not Recovered/Not Resolved]
  - Ocular discomfort [Not Recovered/Not Resolved]
  - Ovarian atrophy [Not Recovered/Not Resolved]
  - Acne [None]

NARRATIVE: CASE EVENT DATE: 201501
